FAERS Safety Report 10409502 (Version 1)
Quarter: 2014Q2

REPORT INFORMATION
  Report Type: Spontaneous
  Country: US (occurrence: None)
  Receive Date: 20140604
  Receipt Date: 20140604
  Transmission Date: 20141212
  Serious: Yes (Other)
  Sender: FDA-Public Use
  Company Number: 163-POMAL-14022547

PATIENT
  Age: 65 Year
  Sex: Male
  Weight: 63.5 kg

DRUGS (10)
  1. POMALYST (POMALIDOMIDE) [Suspect]
     Indication: PLASMA CELL MYELOMA
     Dosage: 14 IN 14D
     Dates: start: 20130514
  2. FENGTANYL (FENTANYL) [Concomitant]
  3. VALTREX (VALACICLOVIR HYDROCHLORIDE) [Concomitant]
  4. ASPIRIN  (ACETYLSALICYLIC ACID) [Concomitant]
  5. CALCIUM (CALCIUM) [Concomitant]
  6. PRILOSEC (OMEPRAZOLE) [Concomitant]
  7. PROCHLORPERAZINE (ROCHLORPERAZINE) [Concomitant]
  8. LORAZEPAM (LORAZEPAM) [Concomitant]
  9. DEXAMETHASONE (DEXAMETHASONE) [Concomitant]
  10. FLOMAX (TAMSULOSIN HYDROCLORIDE) [Concomitant]

REACTIONS (1)
  - Eye infection [None]
